FAERS Safety Report 6375835-9 (Version None)
Quarter: 2009Q3

REPORT INFORMATION
  Report Type: 
  Country: None (occurrence: None)
  Receive Date: 20090924
  Receipt Date: 20090914
  Transmission Date: 20100115
  Serious: Yes (Other)
  Sender: FDA-Public Use
  Company Number: PH-ELI_LILLY_AND_COMPANY-PH200909002803

PATIENT
  Sex: Male

DRUGS (6)
  1. BYETTA [Suspect]
     Indication: DIABETES MELLITUS
     Dosage: 5 UG, 2/D
     Route: 058
     Dates: start: 20090709, end: 20090902
  2. GLIMEPIRIDE [Concomitant]
     Dosage: 2 MG, DAILY (1/D)
  3. VALSARTAN [Concomitant]
  4. ASPIRIN [Concomitant]
  5. GEMFIBROZIL [Concomitant]
  6. OMACOR [Concomitant]

REACTIONS (1)
  - LIPASE INCREASED [None]
